FAERS Safety Report 5321629-2 (Version None)
Quarter: 2007Q1

REPORT INFORMATION
  Report Type: 
  Country: None (occurrence: None)
  Receive Date: 20070220
  Receipt Date: 20061218
  Transmission Date: 20070707
  Serious: No
  Sender: FDA-Public Use
  Company Number: TPA2006A02281

PATIENT
  Age: 58 Year
  Sex: Female
  Weight: 83.9154 kg

DRUGS (10)
  1. ROZEREM [Suspect]
     Indication: INSOMNIA
     Dosage: 8 MG, QHS, PER ORAL
     Route: 048
     Dates: start: 20060801
  2. SYNTHROID [Concomitant]
  3. VENTOLIN INHALER (SALBUTAMOL) (INHALANT) [Concomitant]
  4. REMERON [Concomitant]
  5. EFFEXOR XR [Concomitant]
  6. ZOCOR [Concomitant]
  7. NORVASC [Concomitant]
  8. IRON (IRON) [Concomitant]
  9. PROTONIX [Concomitant]
  10. SINGULAIR [Concomitant]

REACTIONS (1)
  - DRUG SCREEN POSITIVE [None]
